FAERS Safety Report 21098373 (Version 3)
Quarter: 2022Q3

REPORT INFORMATION
  Report Type: Report from Study
  Country: ZA (occurrence: ZA)
  Receive Date: 20220719
  Receipt Date: 20220810
  Transmission Date: 20221027
  Serious: Yes (Death, Other)
  Sender: FDA-Public Use
  Company Number: ZA-BAYER-2022A096671

PATIENT
  Sex: Female

DRUGS (3)
  1. EYLEA [Suspect]
     Active Substance: AFLIBERCEPT
     Indication: Age-related macular degeneration
     Dosage: 1 DF, ONCE, SOLUTION FOR INJECTION
     Route: 031
     Dates: start: 20220408, end: 20220408
  2. EYLEA [Suspect]
     Active Substance: AFLIBERCEPT
     Dosage: 1 DF, ONCE, SOLUTION FOR INJECTION
     Route: 031
     Dates: start: 20220509, end: 20220509
  3. EYLEA [Suspect]
     Active Substance: AFLIBERCEPT
     Dosage: 1 DF, ONCE, SOLUTION FOR INJECTION
     Route: 031
     Dates: start: 20220615, end: 20220615

REACTIONS (1)
  - Death [Fatal]
